FAERS Safety Report 4361079-9 (Version None)
Quarter: 2004Q2

REPORT INFORMATION
  Report Type: 
  Country: None (occurrence: None)
  Receive Date: 20040520
  Receipt Date: 20020523
  Transmission Date: 20050107
  Serious: Yes (Disabling, Congenital Anomaly)
  Sender: FDA-Public Use
  Company Number: US-ROCHE-314033

PATIENT
  Sex: Male
  Weight: 3.2 kg

DRUGS (4)
  1. ACCUTANE [Suspect]
     Dates: start: 19990415, end: 20010115
  2. ACCUTANE [Suspect]
     Dates: start: 20010215, end: 20010508
  3. ALESSE [Concomitant]
     Indication: ACNE
     Dates: start: 20000315, end: 20010508
  4. CONTRACEPTIVE PILL [Concomitant]
     Indication: CONTRACEPTION

REACTIONS (13)
  - CONGENITAL ANOMALY [None]
  - CONGENITAL ENDOCRINE ANOMALY [None]
  - CONGENITAL TORTICOLLIS [None]
  - CONSTIPATION [None]
  - DEVELOPMENTAL DELAY [None]
  - DRUG EXPOSURE DURING PREGNANCY [None]
  - EAR MALFORMATION [None]
  - HYPOTHALAMO-PITUITARY DISORDERS [None]
  - INTELLIGENCE TEST ABNORMAL [None]
  - MUSCLE DISORDER [None]
  - NEUROMYOPATHY [None]
  - SPECIAL SENSES CONGENITAL ANOMALY [None]
  - VISUAL ACUITY REDUCED [None]
